FAERS Safety Report 5162580-0 (Version None)
Quarter: 2006Q4

REPORT INFORMATION
  Report Type: 
  Country: None (occurrence: None)
  Receive Date: 20061201
  Receipt Date: 20061120
  Transmission Date: 20070319
  Serious: Yes (Other)
  Sender: FDA-Public Use
  Company Number: PHRM2006FR03106

PATIENT
  Age: 54 Year
  Sex: Female

DRUGS (2)
  1. ZOMETA [Suspect]
     Indication: MULTIPLE MYELOMA
     Route: 042
     Dates: start: 20040101, end: 20060101
  2. AREDIA [Suspect]
     Indication: MULTIPLE MYELOMA
     Route: 042
     Dates: start: 20000101, end: 20050101

REACTIONS (5)
  - ABSCESS [None]
  - BONE DISORDER [None]
  - INFLAMMATION [None]
  - OSTEONECROSIS [None]
  - TOOTH EXTRACTION [None]
